FAERS Safety Report 18592625 (Version 2)
Quarter: 2021Q1

REPORT INFORMATION
  Report Type: Report from Study
  Country: HK (occurrence: HK)
  Receive Date: 20201209
  Receipt Date: 20210105
  Transmission Date: 20210419
  Serious: Yes (Death)
  Sender: FDA-Public Use
  Company Number: HK-ROCHE-2726605

PATIENT
  Age: 56 Year
  Sex: Male

DRUGS (7)
  1. GLICLAZIDE [Suspect]
     Active Substance: GLICLAZIDE
     Indication: PRODUCT USED FOR UNKNOWN INDICATION
     Route: 065
  2. ATEZOLIZUMAB. [Suspect]
     Active Substance: ATEZOLIZUMAB
     Indication: NON-SMALL CELL LUNG CANCER METASTATIC
     Dosage: THE LAST DOSE OF THE STUDY TREATMENT: ON 03/JAN/2020
     Route: 042
     Dates: start: 20190531, end: 20200103
  3. BEVACIZUMAB. [Suspect]
     Active Substance: BEVACIZUMAB
     Indication: NON-SMALL CELL LUNG CANCER METASTATIC
     Dosage: THE LAST DOSE OF THE STUDY TREATMENT ON 03/JAN/2020
     Route: 042
     Dates: start: 20190531, end: 20200103
  4. CLINDAMYCIN. [Suspect]
     Active Substance: CLINDAMYCIN
     Indication: RASH
     Dosage: 1 MONTH FOR TARGETED THERAPIES INDUCED SKIN RASH
     Route: 048
     Dates: start: 20191003, end: 20200221
  5. METFORMIN [Suspect]
     Active Substance: METFORMIN HYDROCHLORIDE
     Indication: DIABETES MELLITUS
     Route: 065
  6. CARBOPLATIN. [Suspect]
     Active Substance: CARBOPLATIN
     Indication: NON-SMALL CELL LUNG CANCER METASTATIC
     Dosage: THE LAST DOSE OF THE STUDY TREATMENT: 03/JAN/2020
     Route: 042
     Dates: start: 20190531, end: 20200103
  7. PEMETREXED. [Suspect]
     Active Substance: PEMETREXED
     Indication: NON-SMALL CELL LUNG CANCER METASTATIC
     Dosage: THE LAST DOSE OF THE STUDY TREATMENT: 03/JAN/2020
     Route: 042
     Dates: start: 20190531, end: 20200103

REACTIONS (1)
  - Adrenal insufficiency [Recovered/Resolved]

NARRATIVE: CASE EVENT DATE: 20190911
